FAERS Safety Report 9151308 (Version 1)
Quarter: 2013Q1

REPORT INFORMATION
  Report Type: Spontaneous
  Country: IT (occurrence: None)
  Receive Date: 20130201
  Receipt Date: 20130201
  Transmission Date: 20140127
  Serious: Yes (Life-Threatening)
  Sender: FDA-Public Use
  Company Number: 2013AP000878

PATIENT
  Age: 32 Year
  Sex: Female

DRUGS (1)
  1. AZITHROMYCIN (AZITHROMYCIN) [Suspect]
     Indication: PRODUCT USED FOR UNKNOWN INDICATION
     Route: 048
     Dates: start: 20130111, end: 20130111

REACTIONS (3)
  - Throat tightness [None]
  - Erythema [None]
  - Oropharyngeal pain [None]
